FAERS Safety Report 8078099-3 (Version None)
Quarter: 2012Q1

REPORT INFORMATION
  Report Type: 
  Country: None (occurrence: None)
  Receive Date: 20120127
  Receipt Date: 20110105
  Transmission Date: 20120608
  Serious: No
  Sender: FDA-Public Use
  Company Number: US-ABBOTT-10P-163-0688154-00

PATIENT
  Age: 49 Year
  Sex: Female
  Weight: 44.038 kg

DRUGS (7)
  1. STEROIDS [Concomitant]
     Dates: start: 20101115
  2. HUMIRA [Suspect]
     Indication: CROHN'S DISEASE
     Dates: start: 20100901
  3. XANAX [Concomitant]
     Indication: DEPRESSION
  4. OXYCODONE HCL [Concomitant]
     Indication: PAIN
     Dosage: 1 USUALLY AT NIGHT
  5. BELLADONNA [Concomitant]
     Indication: ABDOMINAL PAIN UPPER
  6. AMBIEN [Concomitant]
     Indication: INSOMNIA
     Dosage: 1 AT BEDTIME
  7. STEROIDS [Concomitant]
     Indication: PRODUCT USED FOR UNKNOWN INDICATION

REACTIONS (12)
  - DIARRHOEA [None]
  - MUSCULAR WEAKNESS [None]
  - PAIN [None]
  - TENDERNESS [None]
  - ABDOMINAL DISTENSION [None]
  - GAIT DISTURBANCE [None]
  - ASTHENIA [None]
  - WEIGHT DECREASED [None]
  - CONSTIPATION [None]
  - VASODILATATION [None]
  - OEDEMA PERIPHERAL [None]
  - DRUG INEFFECTIVE [None]
